FAERS Safety Report 22012980 (Version 1)
Quarter: 2023Q1

REPORT INFORMATION
  Report Type: Spontaneous
  Country: CN (occurrence: CN)
  Receive Date: 20230220
  Receipt Date: 20230220
  Transmission Date: 20230418
  Serious: Yes (Other)
  Sender: FDA-Public Use
  Company Number: CN-002147023-NVSC2023CN036348

PATIENT
  Sex: Female

DRUGS (6)
  1. CYCLOSPORINE [Suspect]
     Active Substance: CYCLOSPORINE
     Indication: Abortion spontaneous
     Dosage: 50 MG (2-3 TIMES/D)
     Route: 048
  2. PROGESTERONE [Suspect]
     Active Substance: PROGESTERONE
     Indication: Product used for unknown indication
     Dosage: 20 MG, QD (20MG/TIME, 1 TIME/D, UNTIL 10 WEEKS OF PREGNANCY)
     Route: 030
  3. PROGESTERONE [Suspect]
     Active Substance: PROGESTERONE
     Indication: Product used for unknown indication
     Dosage: 100 MG, BID  (100MG/TIME, 2 TIMES/D, UNTIL 12 WEEKS OF PREGNANCY)
     Route: 048
  4. HUMAN CHORIONIC GONADOTROPIN [Suspect]
     Active Substance: GONADOTROPHIN, CHORIONIC
     Indication: Product used for unknown indication
     Dosage: (1000U/TIME, 1 TIME/D, FOR 1 TO 2 CONSECUTIVE WEEKS)
     Route: 030
  5. VITAMIN E [Suspect]
     Active Substance: .ALPHA.-TOCOPHEROL
     Indication: Product used for unknown indication
     Dosage: 100 MG, TID (100MG/TIME, 3 TIMES/D, UNTIL 12 WEEKS OF PREGNANCY)
     Route: 048
  6. UNSPECIFIED INGREDIENT [Suspect]
     Active Substance: UNSPECIFIED INGREDIENT
     Indication: Abortion spontaneous
     Dosage: 5000 IU (5000IU/ TIME, 1-2 TIMES/D)
     Route: 058

REACTIONS (3)
  - Abortion spontaneous [Unknown]
  - Maternal exposure during pregnancy [Unknown]
  - Product use in unapproved indication [Unknown]
